FAERS Safety Report 23334885 (Version 1)
Quarter: 2023Q4

REPORT INFORMATION
  Report Type: Spontaneous
  Country: AU (occurrence: AU)
  Receive Date: 20231224
  Receipt Date: 20231224
  Transmission Date: 20240110
  Serious: Yes (Other)
  Sender: FDA-Public Use
  Company Number: AU-ABBVIE-5553496

PATIENT
  Sex: Male

DRUGS (10)
  1. VENETOCLAX [Suspect]
     Active Substance: VENETOCLAX
     Indication: Richter^s syndrome
     Route: 048
     Dates: start: 20201202, end: 20220801
  2. GENETICALLY-MODIFIED AUTOLOGOUS T CELLS NOS [Concomitant]
     Active Substance: GENETICALLY-MODIFIED AUTOLOGOUS T CELLS NOS
     Indication: Richter^s syndrome
     Dates: start: 20221203, end: 20230111
  3. CISPLATIN [Suspect]
     Active Substance: CISPLATIN
     Indication: Richter^s syndrome
     Route: 065
     Dates: start: 20221110, end: 20221202
  4. CARBOPLATIN [Suspect]
     Active Substance: CARBOPLATIN
     Indication: Richter^s syndrome
     Route: 065
     Dates: start: 20221110, end: 20221202
  5. CYTARABINE [Suspect]
     Active Substance: CYTARABINE
  6. DEXAMETHASONE [Suspect]
     Active Substance: DEXAMETHASONE
  7. RITUXIMAB [Suspect]
     Active Substance: RITUXIMAB
  8. CYTARABINE [Suspect]
     Active Substance: CYTARABINE
  9. DEXAMETHASONE [Suspect]
     Active Substance: DEXAMETHASONE
  10. RITUXIMAB [Suspect]
     Active Substance: RITUXIMAB

REACTIONS (2)
  - Richter^s syndrome [Unknown]
  - Therapeutic product effect decreased [Unknown]
